FAERS Safety Report 6284179-5 (Version None)
Quarter: 2009Q3

REPORT INFORMATION
  Report Type: 
  Country: None (occurrence: None)
  Receive Date: 20090727
  Receipt Date: 20090716
  Transmission Date: 20100115
  Serious: No
  Sender: FDA-Public Use
  Company Number: US-JNJFOC-20090705676

PATIENT
  Sex: Female
  Weight: 42.64 kg

DRUGS (3)
  1. FENTANYL TRANSDERMAL SYSTEM [Suspect]
     Indication: BONE PAIN
     Route: 062
  2. DURAGESIC-100 [Suspect]
     Indication: BONE PAIN
     Route: 062
  3. FENTANYL TRANSDERMAL SYSTEM [Suspect]
     Indication: BONE PAIN
     Route: 062

REACTIONS (2)
  - APPLICATION SITE PRURITUS [None]
  - WRONG TECHNIQUE IN DRUG USAGE PROCESS [None]
